FAERS Safety Report 7469596-X (Version None)
Quarter: 2011Q2

REPORT INFORMATION
  Report Type: 
  Country: None (occurrence: None)
  Receive Date: 20110510
  Receipt Date: 20081103
  Transmission Date: 20111010
  Serious: Yes (Hospitalization, Other)
  Sender: FDA-Public Use
  Company Number: US-BAYER-200837457NA

PATIENT
  Age: 57 Year
  Sex: Female
  Weight: 56.689 kg

DRUGS (23)
  1. TRASYLOL [Suspect]
     Dosage: 200 ML LOADING DOSE
     Route: 042
     Dates: start: 20060818, end: 20060818
  2. ACETYLSALICYLIC ACID SRT [Concomitant]
     Dosage: 325 MG, UNK
     Route: 048
     Dates: start: 20060620
  3. LISINOPRIL [Concomitant]
     Route: 048
  4. RED BLOOD CELLS, CONCENTRATED [Concomitant]
     Dosage: 2 U, UNK
     Route: 042
     Dates: start: 20060818
  5. RED BLOOD CELLS, CONCENTRATED [Concomitant]
     Dosage: 1 UNIT
     Route: 042
     Dates: start: 20060831
  6. HEPARIN [Concomitant]
     Dosage: 3000 U, UNK
     Route: 042
     Dates: start: 20060620
  7. CARVEDILOL [Concomitant]
     Dosage: 3.125 MG, UNK
  8. TRASYLOL [Suspect]
     Dosage: 50 CC/HR INFUSION
     Route: 042
     Dates: start: 20060818, end: 20060818
  9. NORVASC [Concomitant]
     Dosage: 5 MG, UNK
     Route: 048
  10. NITROGLYCERIN [Concomitant]
     Dosage: TITRATE
     Route: 042
     Dates: start: 20060818
  11. IBUPROFEN [Concomitant]
     Dosage: 800 MG, PRN
     Route: 048
  12. INSULIN, REGULAR [INSULIN] [Concomitant]
     Dosage: 2 U, UNK
     Route: 042
     Dates: start: 20060818
  13. MANNITOL [Concomitant]
     Dosage: 50 G, UNK
     Route: 042
     Dates: start: 20060818
  14. LEVOPHED [Concomitant]
     Dosage: UNK
     Route: 042
     Dates: start: 20060818
  15. FRESH FROZEN PLASMA [Concomitant]
     Dosage: 3 U, UNK
     Route: 042
     Dates: start: 20060830
  16. HYDROCHLOROTHIAZIDE [Concomitant]
     Dosage: 12.5 MG, UNK
     Route: 048
  17. HEPARIN [Concomitant]
     Dosage: 25000 UNITS, UNK
     Route: 042
     Dates: start: 20060818
  18. ANCEF [Concomitant]
     Dosage: 1 G, UNK
     Route: 042
     Dates: start: 20060818
  19. LEVOTHYROXINE SODIUM [Concomitant]
     Dosage: 0.1 MG, UNK
     Route: 048
  20. RED BLOOD CELLS, CONCENTRATED [Concomitant]
     Dosage: 1 UNIT
     Route: 042
     Dates: start: 20060830
  21. TRASYLOL [Suspect]
     Indication: AORTIC VALVE REPLACEMENT
     Dosage: 1 ML, INITIAL
     Route: 042
     Dates: start: 20060818, end: 20060818
  22. LASIX [Concomitant]
     Dosage: 5 MG, UNK
     Route: 042
  23. RED BLOOD CELLS, CONCENTRATED [Concomitant]
     Dosage: 1 UNIT
     Route: 042
     Dates: start: 20060829

REACTIONS (12)
  - RENAL FAILURE [None]
  - EMOTIONAL DISTRESS [None]
  - RENAL INJURY [None]
  - STRESS [None]
  - ANHEDONIA [None]
  - MULTI-ORGAN FAILURE [None]
  - INJURY [None]
  - RENAL IMPAIRMENT [None]
  - ANXIETY [None]
  - UNEVALUABLE EVENT [None]
  - FEAR [None]
  - PAIN [None]
